FAERS Safety Report 11441127 (Version 1)
Quarter: 2015Q3

REPORT INFORMATION
  Report Type: Spontaneous
  Country: IT (occurrence: IT)
  Receive Date: 20150901
  Receipt Date: 20150901
  Transmission Date: 20151125
  Serious: Yes (Hospitalization)
  Sender: FDA-Public Use
  Company Number: IT-NOVOPROD-461496

PATIENT
  Age: 94 Year
  Sex: Female

DRUGS (5)
  1. HUMALOG [Suspect]
     Active Substance: INSULIN LISPRO
     Indication: TYPE 2 DIABETES MELLITUS
     Dosage: 19 U
     Route: 065
     Dates: start: 20150101
  2. LEVEMIR [Suspect]
     Active Substance: INSULIN DETEMIR
     Indication: TYPE 2 DIABETES MELLITUS
     Dosage: 6 U, QD
     Route: 065
     Dates: start: 20150101
  3. IBUSTRIN                           /00730701/ [Concomitant]
     Dosage: UNK
     Route: 065
  4. TRINIPLAS [Concomitant]
     Active Substance: NITROGLYCERIN
     Dosage: UNK
     Route: 065
  5. ADALAT CRONO [Concomitant]
     Active Substance: NIFEDIPINE
     Dosage: UNK
     Route: 065

REACTIONS (2)
  - Injury [Unknown]
  - Hypoglycaemia [Unknown]

NARRATIVE: CASE EVENT DATE: 20150623
